FAERS Safety Report 4737140-3 (Version None)
Quarter: 2005Q3

REPORT INFORMATION
  Report Type: 
  Country: None (occurrence: None)
  Receive Date: 20050728
  Receipt Date: 20050615
  Transmission Date: 20060218
  Serious: No
  Sender: FDA-Public Use
  Company Number: 200515070US

PATIENT
  Age: 38 Year
  Sex: Female

DRUGS (1)
  1. KETEK [Suspect]
     Indication: SINUSITIS
     Dosage: 800 MG/DAY  PO
     Route: 048
     Dates: start: 20050614, end: 20050614

REACTIONS (3)
  - DIZZINESS [None]
  - NAUSEA [None]
  - VISION BLURRED [None]
